FAERS Safety Report 16165549 (Version 1)
Quarter: 2019Q2

REPORT INFORMATION
  Report Type: Spontaneous
  Country: US (occurrence: US)
  Receive Date: 20190405
  Receipt Date: 20190405
  Transmission Date: 20190711
  Serious: No
  Sender: FDA-Public Use
  Company Number: US-BIOMARINAP-US-2019-122769

PATIENT
  Age: 8 Year
  Sex: Male

DRUGS (1)
  1. KUVAN [Suspect]
     Active Substance: SAPROPTERIN DIHYDROCHLORIDE
     Indication: PHENYLKETONURIA
     Dosage: 500 MILLIGRAM, QD
     Route: 065
     Dates: start: 201603

REACTIONS (1)
  - Respiration abnormal [Unknown]

NARRATIVE: CASE EVENT DATE: 20190331
